FAERS Safety Report 9262823 (Version 1)
Quarter: 2013Q2

REPORT INFORMATION
  Report Type: Report from Study
  Country: CA (occurrence: CA)
  Receive Date: 20130430
  Receipt Date: 20130430
  Transmission Date: 20140414
  Serious: Yes (Other)
  Sender: FDA-Public Use
  Company Number: CA-JNJFOC-20130415198

PATIENT
  Age: 60 Year
  Sex: Female

DRUGS (4)
  1. REMICADE [Suspect]
     Indication: CROHN^S DISEASE
     Route: 042
     Dates: start: 201011
  2. LIPITOR [Concomitant]
     Route: 065
  3. IMURAN [Concomitant]
     Route: 048
  4. PENTASA [Concomitant]
     Route: 065

REACTIONS (1)
  - Abdominal operation [Recovering/Resolving]
